FAERS Safety Report 4610616-5 (Version None)
Quarter: 2005Q1

REPORT INFORMATION
  Report Type: 
  Country: None (occurrence: None)
  Receive Date: 20050316
  Receipt Date: 20050302
  Transmission Date: 20050727
  Serious: Yes (Other)
  Sender: FDA-Public Use
  Company Number: C-05-0020

PATIENT
  Age: 4 Month
  Sex: Female

DRUGS (3)
  1. CARBAXEFED DM  RF  ORAL DROPS, MGP  PRODUCT CODE 8237 [Suspect]
     Indication: COUGH
     Dosage: 1/2 ML, 4 TIMES AS A DAY
     Dates: start: 20050225
  2. CARBAXEFED DM  RF  ORAL DROPS, MGP  PRODUCT CODE 8237 [Suspect]
     Indication: NASAL CONGESTION
     Dosage: 1/2 ML, 4 TIMES AS A DAY
     Dates: start: 20050225
  3. CARBAXEFED DM  RF  ORAL DROPS, MGP  PRODUCT CODE 8237 [Suspect]
     Indication: UPPER RESPIRATORY TRACT INFECTION
     Dosage: 1/2 ML, 4 TIMES AS A DAY
     Dates: start: 20050225

REACTIONS (3)
  - COUGH [None]
  - PHARMACEUTICAL PRODUCT COMPLAINT [None]
  - VOMITING [None]
